FAERS Safety Report 25482222 (Version 1)
Quarter: 2025Q2

REPORT INFORMATION
  Report Type: Report from Study
  Country: CA (occurrence: CA)
  Receive Date: 20250626
  Receipt Date: 20250626
  Transmission Date: 20250717
  Serious: Yes (Other)
  Sender: SAMSUNG BIOEPIS
  Company Number: CA-SAMSUNG BIOEPIS-SB-2025-22000

PATIENT
  Age: 60 Year
  Sex: Male

DRUGS (3)
  1. ETANERCEPT [Suspect]
     Active Substance: ETANERCEPT
     Indication: Psoriatic arthropathy
     Dates: start: 20220906
  2. METHOTREXATE [Suspect]
     Active Substance: METHOTREXATE
     Indication: Product used for unknown indication
  3. DICLOFENAC SR AWA [Concomitant]
     Indication: Product used for unknown indication

REACTIONS (4)
  - Autoimmune disorder [Unknown]
  - Psoriasis [Unknown]
  - Liver function test increased [Recovering/Resolving]
  - Serum ferritin increased [Not Recovered/Not Resolved]
